FAERS Safety Report 9227729 (Version 1)
Quarter: 2013Q1

REPORT INFORMATION
  Report Type: Spontaneous
  Country: US (occurrence: None)
  Receive Date: 20121031
  Receipt Date: 20121031
  Transmission Date: 20140127
  Serious: No
  Sender: FDA-Public Use
  Company Number: PHEH2012US015555

PATIENT
  Age: 30 Year
  Sex: Female
  Weight: 90.7 kg

DRUGS (18)
  1. GILENYA (FTY)CAPSULE, 0.5MG [Suspect]
     Indication: RELAPSING-REMITTING MULTIPLE SCLEROSIS
     Route: 048
     Dates: start: 20120720
  2. ALLEGRA [Concomitant]
  3. DESMOPRESSIN (DESMOPRESSIN) [Concomitant]
  4. DESMOPRESSIN (DESMOPRESSIN) [Concomitant]
  5. OXYBUTYN (OXYBUTYNIN HYDROCHLORIDE) [Concomitant]
  6. OXYBTYN (OXYBUTYNIN HYDROCHLORIDE) [Concomitant]
  7. ZOLOFT (SERTRALINE HYDORCHLORIDE) [Concomitant]
  8. ORTHO-CYLCEN (ETHINLESTRADIOL, NORGESTIMATE) [Concomitant]
  9. CRANBERRY [Concomitant]
  10. ALBUTEROL (SALBUTAMOL) [Concomitant]
  11. VITAMIN D3 (COLECALCIFEROL) [Concomitant]
  12. MULTIVITAMINS (MULTIVITAMINS NOS) [Concomitant]
  13. SERTRALINE HYDROCHLORIDE (SERTRALINE HYDROCHLORIDE) [Concomitant]
  14. EXCEDRIN (CAFFEINE, PARACETAMOL) [Concomitant]
  15. IBUPROFEN (IBUPROFEN) [Concomitant]
  16. CLARITIN (LORATIDINE) [Concomitant]
  17. PAROXETINE (PAROXETINE) [Concomitant]
  18. DEXAMETHASONE (MEXAMETHAOSONE) [Concomitant]

REACTIONS (5)
  - Eye irritation [None]
  - Headache [None]
  - Decreased appetite [None]
  - Multiple sclerosis relapse [None]
  - Eye pain [None]
